FAERS Safety Report 6345801-8 (Version None)
Quarter: 2009Q3

REPORT INFORMATION
  Report Type: 
  Country: None (occurrence: None)
  Receive Date: 20090909
  Receipt Date: 20090904
  Transmission Date: 20100115
  Serious: Yes (Death, Life-Threatening, Hospitalization)
  Sender: FDA-Public Use
  Company Number: FR-WYE-G03877309

PATIENT
  Sex: Male
  Weight: 80 kg

DRUGS (11)
  1. TORISEL [Suspect]
     Indication: METASTATIC RENAL CELL CARCINOMA
     Route: 042
     Dates: start: 20090504
  2. KARDEGIC [Concomitant]
     Route: 048
  3. TAHOR [Concomitant]
     Route: 048
  4. AMIODARONE HYDROCHLORIDE [Concomitant]
     Route: 048
  5. PARACETAMOL [Concomitant]
     Dosage: UNTIL 6 CAPSULES TOTAL DAILY
     Route: 048
  6. SKENAN [Concomitant]
     Dosage: 60 MG TOTAL DAILY
     Route: 048
  7. LASIX [Concomitant]
     Route: 048
     Dates: end: 20090528
  8. KENZEN [Concomitant]
     Dosage: UNKNOWN
     Route: 048
  9. ACTISKENAN [Concomitant]
     Dosage: UNKNOWN; ON REQUEST
     Route: 048
  10. DEXTROPROPOXYPHENE HYDROCHLORIDE [Concomitant]
     Dosage: UNTIL 6 CAPSULES TOTAL DAILY
     Route: 048
  11. LEVOTHYROXINE SODIUM [Concomitant]
     Route: 048

REACTIONS (12)
  - CARDIOMYOPATHY [None]
  - CONDITION AGGRAVATED [None]
  - CONFUSIONAL STATE [None]
  - DEHYDRATION [None]
  - DIARRHOEA [None]
  - EJECTION FRACTION DECREASED [None]
  - GENERAL PHYSICAL HEALTH DETERIORATION [None]
  - INFECTION [None]
  - RENAL FAILURE ACUTE [None]
  - RESPIRATORY DISORDER [None]
  - SHOCK [None]
  - WEIGHT DECREASED [None]
